FAERS Safety Report 7147966-7 (Version None)
Quarter: 2010Q4

REPORT INFORMATION
  Report Type: 
  Country: None (occurrence: None)
  Receive Date: 20101207
  Receipt Date: 20101207
  Transmission Date: 20110411
  Serious: Yes (Other)
  Sender: FDA-Public Use
  Company Number: None

PATIENT
  Age: 53 Year
  Sex: Female
  Weight: 56.6996 kg

DRUGS (1)
  1. CLINDAMYCIN [Suspect]
     Indication: INFECTION
     Dosage: ONE CAPSULE 4 TIMES A DAY PO
     Route: 048
     Dates: start: 20101025, end: 20101030

REACTIONS (1)
  - CLOSTRIDIUM DIFFICILE COLITIS [None]
